FAERS Safety Report 22354679 (Version 1)
Quarter: 2023Q2

REPORT INFORMATION
  Report Type: Spontaneous
  Country: US (occurrence: None)
  Receive Date: 20230522
  Receipt Date: 20230522
  Transmission Date: 20230722
  Serious: No
  Sender: FDA-Public Use
  Company Number: None

PATIENT
  Age: 66 Year
  Sex: Male

DRUGS (1)
  1. ALCAINE [Suspect]
     Active Substance: PROPARACAINE HYDROCHLORIDE

REACTIONS (3)
  - Eye irritation [None]
  - Ocular hyperaemia [None]
  - Product quality issue [None]

NARRATIVE: CASE EVENT DATE: 20230421
